FAERS Safety Report 5075065-7 (Version None)
Quarter: 2006Q3

REPORT INFORMATION
  Report Type: 
  Country: None (occurrence: None)
  Receive Date: 20060714
  Receipt Date: 20060509
  Transmission Date: 20061208
  Serious: No
  Sender: FDA-Public Use
  Company Number: 2006SP001991

PATIENT
  Age: 45 Year
  Sex: Female
  Weight: 63.5036 kg

DRUGS (1)
  1. LUNESTA [Suspect]
     Indication: POOR QUALITY SLEEP
     Dosage: 2 MG;PRN;ORAL
     Route: 048
     Dates: start: 20060425

REACTIONS (2)
  - NERVOUSNESS [None]
  - TREMOR [None]
